FAERS Safety Report 6447831-4 (Version None)
Quarter: 2009Q4

REPORT INFORMATION
  Report Type: 
  Country: None (occurrence: None)
  Receive Date: 20091120
  Receipt Date: 20091021
  Transmission Date: 20100525
  Serious: No
  Sender: FDA-Public Use
  Company Number: A0812781A

PATIENT
  Age: 65 Year
  Sex: Female

DRUGS (4)
  1. VERAMYST [Suspect]
     Dosage: 2SPR PER DAY
     Route: 045
     Dates: start: 20090901
  2. ZYRTEC [Concomitant]
  3. BLOOD PRESSURE MEDICINES [Concomitant]
  4. VITAMINS [Concomitant]

REACTIONS (1)
  - NASAL DISCOMFORT [None]
